FAERS Safety Report 16851644 (Version 1)
Quarter: 2019Q3

REPORT INFORMATION
  Report Type: Spontaneous
  Country: US (occurrence: US)
  Receive Date: 20190925
  Receipt Date: 20190925
  Transmission Date: 20191005
  Serious: Yes (Hospitalization)
  Sender: FDA-Public Use
  Company Number: US-BAUSCH-BL-2019-055008

PATIENT
  Sex: Female
  Weight: 81.72 kg

DRUGS (2)
  1. XIFAXAN [Suspect]
     Active Substance: RIFAXIMIN
     Indication: GASTROINTESTINAL BACTERIAL OVERGROWTH
     Dosage: THERAPY DURATION: 14 OR 21 DAYS (SUMMER OF 2018)
     Route: 048
     Dates: start: 2018, end: 2018
  2. XIFAXAN [Suspect]
     Active Substance: RIFAXIMIN
     Indication: PRODUCT USE IN UNAPPROVED INDICATION
     Dosage: THERAPY DURATION: SECOND COURSE 14 OR 21 DAYS
     Route: 048
     Dates: start: 201811, end: 2018

REACTIONS (7)
  - Gastrointestinal bacterial overgrowth [Not Recovered/Not Resolved]
  - Condition aggravated [Not Recovered/Not Resolved]
  - Product use in unapproved indication [Unknown]
  - Memory impairment [Unknown]
  - Drug effective for unapproved indication [Unknown]
  - Cerebrovascular accident [Unknown]
  - Inability to afford medication [Unknown]

NARRATIVE: CASE EVENT DATE: 2018
